FAERS Safety Report 8254693-1 (Version None)
Quarter: 2012Q2

REPORT INFORMATION
  Report Type: 
  Country: None (occurrence: None)
  Receive Date: 20120403
  Receipt Date: 20120325
  Transmission Date: 20120825
  Serious: Yes (Hospitalization, Other)
  Sender: FDA-Public Use
  Company Number: IL-ELI_LILLY_AND_COMPANY-IL201203008554

PATIENT
  Sex: Female
  Weight: 55 kg

DRUGS (2)
  1. CALCIUM W/VITAMIN D NOS [Concomitant]
  2. FORTEO [Suspect]
     Indication: OSTEOPOROSIS
     Dosage: 20 UG, QD
     Route: 058
     Dates: start: 20101007

REACTIONS (3)
  - FALL [None]
  - HAND FRACTURE [None]
  - HIP FRACTURE [None]
